FAERS Safety Report 5845694-9 (Version None)
Quarter: 2008Q3

REPORT INFORMATION
  Report Type: 
  Country: None (occurrence: None)
  Receive Date: 20080814
  Receipt Date: 20080804
  Transmission Date: 20090109
  Serious: Yes (Other)
  Sender: FDA-Public Use
  Company Number: PHHY2008GB13721

PATIENT
  Sex: Male

DRUGS (6)
  1. TASIGNA [Suspect]
     Indication: CHRONIC MYELOID LEUKAEMIA
     Dosage: 400 MG, BID
     Route: 048
     Dates: start: 20080701
  2. FLUOXETINE HCL [Concomitant]
     Indication: DEPRESSION
     Dosage: UNK
     Route: 048
  3. PROCHLORPERAZINE [Concomitant]
     Indication: VERTIGO
     Dosage: 5 MG, TID
     Route: 048
  4. SOLPADOL [Concomitant]
     Indication: PAIN
     Dosage: 1 TAB QD
     Route: 048
  5. GABAPENTIN [Concomitant]
     Indication: PAIN
     Dosage: 300 MG, TID
     Route: 048
  6. OXYTOCIN [Concomitant]
     Indication: PAIN
     Dosage: 10 MG, QD
     Route: 048

REACTIONS (6)
  - BALANCE DISORDER [None]
  - HEADACHE [None]
  - INSOMNIA [None]
  - NAUSEA [None]
  - SLEEP DISORDER [None]
  - VERTIGO [None]
